FAERS Safety Report 13468710 (Version 2)
Quarter: 2017Q2

REPORT INFORMATION
  Report Type: Spontaneous
  Country: FR (occurrence: FR)
  Receive Date: 20170421
  Receipt Date: 20170502
  Transmission Date: 20170830
  Serious: Yes (Life-Threatening, Hospitalization)
  Sender: FDA-Public Use
  Company Number: FR-PFIZER INC-2017173606

PATIENT
  Age: 4 Year
  Sex: Male

DRUGS (2)
  1. ADVILMED ENFANTS ET NOURRISSONS [Suspect]
     Active Substance: IBUPROFEN
     Indication: OTITIS MEDIA ACUTE
     Dosage: UNK
     Route: 048
     Dates: start: 201704, end: 201704
  2. ORELOX ENFANTS ET NOURRISSONS [Suspect]
     Active Substance: CEFPODOXIME PROXETIL
     Indication: OTITIS MEDIA ACUTE
     Dosage: UNK
     Route: 048
     Dates: start: 201704, end: 201704

REACTIONS (3)
  - Infection [Recovering/Resolving]
  - Condition aggravated [Recovering/Resolving]
  - Brain empyema [Recovering/Resolving]

NARRATIVE: CASE EVENT DATE: 20170404
